FAERS Safety Report 6348046-0 (Version None)
Quarter: 2009Q3

REPORT INFORMATION
  Report Type: 
  Country: None (occurrence: None)
  Receive Date: 20090910
  Receipt Date: 20090826
  Transmission Date: 20100115
  Serious: Yes (Other)
  Sender: FDA-Public Use
  Company Number: JP-PFIZER INC-2009261520

PATIENT
  Age: 66 Year
  Sex: Male

DRUGS (4)
  1. UNASYN [Suspect]
     Indication: PNEUMONIA ASPIRATION
  2. DIAZEPAM [Concomitant]
  3. PHENYTOIN [Concomitant]
  4. PHENOBARBITAL [Concomitant]

REACTIONS (1)
  - INTERSTITIAL LUNG DISEASE [None]
